FAERS Safety Report 9347043 (Version 4)
Quarter: 2013Q3

REPORT INFORMATION
  Report Type: Report from Study
  Country: AR (occurrence: AR)
  Receive Date: 20130613
  Receipt Date: 20130717
  Transmission Date: 20140515
  Serious: Yes (Hospitalization)
  Sender: FDA-Public Use
  Company Number: AR-FRI-1000045777

PATIENT
  Age: 65 Year
  Sex: Male
  Weight: 55.1 kg

DRUGS (7)
  1. SPIRONOLACTONE [Concomitant]
     Indication: HYPERTENSION
     Dosage: 12.5
     Route: 048
     Dates: start: 2010
  2. TERAZOSINA [Concomitant]
     Indication: BENIGN PROSTATIC HYPERPLASIA
     Dosage: 5
     Route: 048
     Dates: start: 2011
  3. RANTIDINE [Concomitant]
     Indication: GASTRITIS
     Dosage: 300
     Route: 048
     Dates: start: 201106, end: 20130605
  4. CLONAZEPAM [Concomitant]
     Indication: HYPERTENSION
     Dosage: 0.5
     Route: 048
     Dates: start: 2011
  5. FINASTERIDE [Concomitant]
     Indication: PROSTATIC DISORDER
     Dosage: 1
     Route: 048
     Dates: start: 20120924
  6. FINASTERIDE [Concomitant]
     Indication: MICTURITION DISORDER
  7. ROFLUMILAST [Suspect]
     Indication: CHRONIC OBSTRUCTIVE PULMONARY DISEASE
     Dosage: 500 MCG
     Route: 048
     Dates: start: 20120905, end: 20130524

REACTIONS (1)
  - Gastrointestinal angiodysplasia [Recovered/Resolved]
